FAERS Safety Report 13263599 (Version 1)
Quarter: 2017Q1

REPORT INFORMATION
  Report Type: Spontaneous
  Country: US (occurrence: US)
  Receive Date: 20170221
  Receipt Date: 20170221
  Transmission Date: 20170428
  Serious: No
  Sender: FDA-Public Use
  Company Number: None

PATIENT
  Age: 51 Year
  Sex: Female
  Weight: 58.5 kg

DRUGS (1)
  1. METHYLPREDNISOLONE. [Suspect]
     Active Substance: METHYLPREDNISOLONE
     Indication: HERPES ZOSTER
     Route: 048
     Dates: start: 20170121, end: 20170121

REACTIONS (2)
  - Pharyngeal oedema [None]
  - Dyspnoea [None]

NARRATIVE: CASE EVENT DATE: 20170121
